FAERS Safety Report 22295897 (Version 1)
Quarter: 2023Q2

REPORT INFORMATION
  Report Type: Spontaneous
  Country: RU (occurrence: None)
  Receive Date: 20230508
  Receipt Date: 20230508
  Transmission Date: 20230722
  Serious: Yes (Other)
  Sender: FDA-Public Use
  Company Number: RU-ROCHE-3344064

PATIENT
  Age: 35 Year
  Sex: Female

DRUGS (4)
  1. TRASTUZUMAB [Suspect]
     Active Substance: TRASTUZUMAB
     Indication: Breast cancer
     Dosage: 6 CYCLES WERE COMPLETED
     Route: 065
     Dates: start: 20220915, end: 20221230
  2. PERTUZUMAB [Suspect]
     Active Substance: PERTUZUMAB
     Indication: Breast cancer
     Dosage: 6 CYCLES WERE COMPLETED
     Route: 065
     Dates: start: 20220915, end: 20221230
  3. DOCETAXEL [Suspect]
     Active Substance: DOCETAXEL
     Indication: Breast cancer
     Dosage: 6 CYCLES WERE COMPLETED
     Route: 065
     Dates: start: 20220915, end: 20221230
  4. CARBOPLATIN [Suspect]
     Active Substance: CARBOPLATIN
     Indication: Breast cancer
     Dosage: 6 CYCLES WERE COMPLETED
     Route: 065
     Dates: start: 20220915, end: 20221230

REACTIONS (3)
  - Leukopenia [Unknown]
  - Neutropenia [Unknown]
  - Neoplasm [Unknown]

NARRATIVE: CASE EVENT DATE: 20230114
